FAERS Safety Report 7052695-4 (Version None)
Quarter: 2010Q4

REPORT INFORMATION
  Report Type: 
  Country: None (occurrence: None)
  Receive Date: 20101012
  Receipt Date: 20101004
  Transmission Date: 20110411
  Serious: Yes (Congenital Anomaly)
  Sender: FDA-Public Use
  Company Number: B0678274A

PATIENT
  Sex: 0

DRUGS (6)
  1. EPOPROSTENOL SODIUM [Suspect]
     Indication: PULMONARY ARTERIAL HYPERTENSION
     Dosage: INTRAVENOUS
     Route: 042
  2. NIFEDIPINE [Suspect]
     Dosage: 90 MG / TRANSPLACENTARY
     Route: 064
  3. BETAMETHASONE [Suspect]
     Indication: PRENATAL CARE
     Dosage: TRANSPLACENTARY
     Route: 064
  4. ENOXAPARIN (FORMULATION UNKNOWN) (ENOXAPARIN) [Suspect]
     Dosage: TRANSPLACENTARY
     Route: 064
  5. NITRIC OXIDE [Suspect]
     Dosage: TRANSPLACENTARY
     Route: 064
  6. ANESTH.FOR OP.PROCEDURE (FORMULATION UNKNOWN) (ANESTH.FOR OP.PROCEDURE [Suspect]
     Dosage: TRANSPLACENTARY
     Route: 064

REACTIONS (5)
  - CAESAREAN SECTION [None]
  - MATERNAL DRUGS AFFECTING FOETUS [None]
  - NEONATAL RESPIRATORY DISTRESS SYNDROME [None]
  - PATENT DUCTUS ARTERIOSUS [None]
  - PREMATURE BABY [None]
